FAERS Safety Report 7047024-6 (Version None)
Quarter: 2010Q4

REPORT INFORMATION
  Report Type: 
  Country: None (occurrence: None)
  Receive Date: 20101012
  Receipt Date: 20100927
  Transmission Date: 20110411
  Serious: Yes (Hospitalization)
  Sender: FDA-Public Use
  Company Number: 2010-3352

PATIENT
  Age: 69 Year
  Sex: Male

DRUGS (1)
  1. APO-GO (APOMORPHINE HYDROCHLORIDE) (APOMORPHINE HYDROCHLORIDE) [Suspect]
     Indication: PRODUCT USED FOR UNKNOWN INDICATION
     Dosage: 17 HOURS/DAY (, 17 HOURS/DAY), SUBCUTANEOUS
     Route: 058
     Dates: start: 20100908

REACTIONS (6)
  - ABASIA [None]
  - APHASIA [None]
  - GENERAL PHYSICAL HEALTH DETERIORATION [None]
  - HALLUCINATION [None]
  - HYPOPHAGIA [None]
  - UNRESPONSIVE TO STIMULI [None]
